FAERS Safety Report 9462463 (Version 1)
Quarter: 2013Q3

REPORT INFORMATION
  Report Type: Spontaneous
  Country: US (occurrence: None)
  Receive Date: 20130815
  Receipt Date: 20130815
  Transmission Date: 20140515
  Serious: Yes (Hospitalization, Disabling)
  Sender: FDA-Public Use
  Company Number: None

PATIENT
  Age: 49 Year
  Sex: Male
  Weight: 87.5 kg

DRUGS (11)
  1. SIMVASTATIN [Suspect]
     Indication: DYSLIPIDAEMIA
     Dosage: 1 TAB QHS/BEDTIME ORAL
     Route: 048
     Dates: start: 20030101, end: 20130207
  2. SIMVASTATIN [Suspect]
     Indication: CORONARY ARTERY DISEASE
     Dosage: 1 TAB QHS/BEDTIME ORAL
     Route: 048
     Dates: start: 20030101, end: 20130207
  3. NIASPAN ER [Suspect]
     Indication: DYSLIPIDAEMIA
     Dosage: 1 TAB QD ORAL
     Route: 048
     Dates: start: 20130718, end: 20130724
  4. VORICONAZOLE [Concomitant]
  5. PROGRAF [Concomitant]
  6. CELLCEPT [Concomitant]
  7. PREDNISONE [Concomitant]
  8. FAMOTIDINE [Concomitant]
  9. BACTRIM [Concomitant]
  10. METFORMIN [Concomitant]
  11. ASA [Concomitant]

REACTIONS (9)
  - Bradycardia [None]
  - Fall [None]
  - Musculoskeletal stiffness [None]
  - Pain [None]
  - Rhabdomyolysis [None]
  - Blood creatinine increased [None]
  - Haemodialysis [None]
  - Nervous system disorder [None]
  - Drug interaction [None]
